FAERS Safety Report 12109066 (Version 1)
Quarter: 2016Q1

REPORT INFORMATION
  Report Type: Spontaneous
  Country: US (occurrence: None)
  Receive Date: 20160222
  Receipt Date: 20160222
  Transmission Date: 20160526
  Serious: No
  Sender: FDA-Public Use
  Company Number: None

PATIENT
  Age: 28 Year
  Sex: Female

DRUGS (3)
  1. MAKENA [Suspect]
     Active Substance: HYDROXYPROGESTERONE CAPROATE
     Indication: PREMATURE LABOUR
     Route: 030
     Dates: start: 20160128, end: 20160212
  2. FIBER CAPS [Concomitant]
     Active Substance: CALCIUM POLYCARBOPHIL
  3. PRENATAL [Concomitant]
     Active Substance: VITAMINS

REACTIONS (1)
  - Rash pruritic [None]

NARRATIVE: CASE EVENT DATE: 20160212
